FAERS Safety Report 4624882-3 (Version None)
Quarter: 2005Q2

REPORT INFORMATION
  Report Type: 
  Country: None (occurrence: None)
  Receive Date: 20050401
  Receipt Date: 20050321
  Transmission Date: 20051028
  Serious: Yes (Hospitalization)
  Sender: FDA-Public Use
  Company Number: US-BRISTOL-MYERS SQUIBB COMPANY-12906178

PATIENT
  Age: 43 Year
  Sex: Female

DRUGS (6)
  1. CISPLATIN [Suspect]
     Indication: GASTRIC CANCER
     Route: 042
     Dates: start: 20041020, end: 20041020
  2. KLOR-CON [Concomitant]
     Route: 048
     Dates: start: 20041020
  3. MAGNESIUM CHLORIDE [Concomitant]
     Route: 048
     Dates: start: 20041020
  4. ALPRAZOLAM [Concomitant]
     Indication: ANXIETY
     Route: 048
     Dates: start: 20040901
  5. COMPAZINE [Concomitant]
     Indication: NAUSEA
     Route: 048
     Dates: start: 20041020
  6. HYDROCODONE [Concomitant]
     Indication: PAIN
     Dosage: DOSAGE FORM: TABLET
     Route: 048
     Dates: start: 20040901

REACTIONS (7)
  - ANAEMIA [None]
  - ASTHENIA [None]
  - DEHYDRATION [None]
  - GASTROINTESTINAL HAEMORRHAGE [None]
  - NAUSEA [None]
  - PAIN [None]
  - VOMITING [None]
